FAERS Safety Report 19673528 (Version 1)
Quarter: 2021Q3

REPORT INFORMATION
  Report Type: Spontaneous
  Country: US (occurrence: US)
  Receive Date: 20210809
  Receipt Date: 20210809
  Transmission Date: 20211014
  Serious: No
  Sender: FDA-Public Use
  Company Number: US-SA-2021SA258406

PATIENT
  Age: 77 Year
  Sex: Female

DRUGS (1)
  1. ALLEGRA ALLERGY [Suspect]
     Active Substance: FEXOFENADINE HYDROCHLORIDE
     Indication: DERMATITIS ALLERGIC
     Dosage: DRUG STRUCTURE DOSAGE : 1 DRUG INTERVAL DOSAGE : ONCE DAILY
     Route: 065

REACTIONS (4)
  - Eye pruritus [Unknown]
  - Sneezing [Unknown]
  - Lacrimation increased [Unknown]
  - Drug ineffective [Unknown]
